FAERS Safety Report 4509345-8 (Version None)
Quarter: 2004Q4

REPORT INFORMATION
  Report Type: 
  Country: None (occurrence: None)
  Receive Date: 20041123
  Receipt Date: 20041118
  Transmission Date: 20050328
  Serious: Yes (Disabling)
  Sender: FDA-Public Use
  Company Number: US-MERCK-0411USA03264

PATIENT
  Age: 69 Year
  Sex: Female

DRUGS (2)
  1. VIOXX [Suspect]
     Indication: INTERVERTEBRAL DISC PROTRUSION
     Route: 048
     Dates: start: 20040601, end: 20040801
  2. LEVOXYL [Concomitant]
     Route: 065

REACTIONS (6)
  - BLOOD PRESSURE INCREASED [None]
  - CONFUSIONAL STATE [None]
  - FLUSHING [None]
  - HEADACHE [None]
  - NERVOUSNESS [None]
  - SENSATION OF HEAVINESS [None]
